FAERS Safety Report 11716770 (Version 3)
Quarter: 2015Q4

REPORT INFORMATION
  Report Type: Spontaneous
  Country: US (occurrence: US)
  Receive Date: 20151104
  Receipt Date: 20151120
  Transmission Date: 20160304
  Serious: No
  Sender: FDA-Public Use
  Company Number: US-ELI_LILLY_AND_COMPANY-US201101003609

PATIENT
  Age: 90 Year
  Sex: Female

DRUGS (5)
  1. FORTEO [Suspect]
     Active Substance: TERIPARATIDE
     Dosage: 20 UG, QD
     Route: 058
  2. FORTEO [Suspect]
     Active Substance: TERIPARATIDE
     Dosage: 20 UG, QD
     Route: 058
  3. FORTEO [Suspect]
     Active Substance: TERIPARATIDE
     Dosage: 20 UG, QD
     Route: 058
  4. FORTEO [Suspect]
     Active Substance: TERIPARATIDE
     Dosage: 20 UG, QD
     Route: 058
  5. FORTEO [Suspect]
     Active Substance: TERIPARATIDE
     Indication: OSTEOPOROSIS
     Dosage: 20 UG, DAILY (1/D)
     Route: 058

REACTIONS (12)
  - Hair growth abnormal [Unknown]
  - Injection site haemorrhage [Unknown]
  - Dizziness [Unknown]
  - Fall [Unknown]
  - Pain [Unknown]
  - Erythema [Unknown]
  - Injection site bruising [Unknown]
  - Limb injury [Unknown]
  - Arthritis [Unknown]
  - Feeling abnormal [Unknown]
  - General physical health deterioration [Unknown]
  - Hypoacusis [Unknown]

NARRATIVE: CASE EVENT DATE: 20120314
